FAERS Safety Report 13038516 (Version 2)
Quarter: 2017Q1

REPORT INFORMATION
  Report Type: Spontaneous
  Country: ES (occurrence: ES)
  Receive Date: 20161219
  Receipt Date: 20170120
  Transmission Date: 20170428
  Serious: Yes (Other)
  Sender: FDA-Public Use
  Company Number: ES-BIOTEST-T 862/16

PATIENT
  Sex: Male

DRUGS (3)
  1. IVIG (NOT BIOTEST) [Suspect]
     Active Substance: HUMAN IMMUNOGLOBULIN G
     Indication: BK VIRUS INFECTION
     Route: 041
  2. MYCOPHENOLATE [Concomitant]
     Active Substance: MYCOPHENOLIC ACID
     Indication: BK VIRUS INFECTION
  3. LEFLUNOMIDE. [Concomitant]
     Active Substance: LEFLUNOMIDE
     Indication: BK VIRUS INFECTION

REACTIONS (3)
  - Renal transplant failure [Unknown]
  - Drug ineffective for unapproved indication [Unknown]
  - Transplant rejection [Unknown]
